FAERS Safety Report 8543374-2 (Version None)
Quarter: 2012Q3

REPORT INFORMATION
  Report Type: 
  Country: None (occurrence: None)
  Receive Date: 20120727
  Receipt Date: 20120713
  Transmission Date: 20120928
  Serious: Yes (Other)
  Sender: FDA-Public Use
  Company Number: PHEH2011US07152

PATIENT
  Sex: Female
  Weight: 65.76 kg

DRUGS (13)
  1. GLEEVEC [Suspect]
     Dosage: 200 MG, DAILY
     Route: 048
  2. ZOFRAN [Concomitant]
     Dosage: 4 MG, TID
     Route: 048
  3. FLUID/ELECTROLYTE REPLACEMENT THERAPY [Concomitant]
  4. OMEPRAZOLE [Concomitant]
     Dosage: 20 MG, DAILY
  5. GLEEVEC [Suspect]
     Indication: GASTROINTESTINAL STROMAL TUMOUR
     Dosage: 400 MG, DAILY
     Route: 048
     Dates: start: 20110831
  6. VYTORIN [Concomitant]
  7. ASPIRIN [Concomitant]
     Dosage: 81 MG, UNK
  8. PLAVIX [Concomitant]
     Dosage: 75 MG, QD
     Route: 048
  9. GLEEVEC [Suspect]
     Dosage: 100 MG, BID
     Route: 048
  10. RANEXA [Concomitant]
     Dosage: 500 MG, UNK
  11. METFORMIN HYDROCHLORIDE [Concomitant]
     Dosage: 850 MG, UNK
  12. GLEEVEC [Suspect]
     Indication: GASTRIC CANCER
     Dosage: 100 MG, QD
     Route: 048
     Dates: start: 20110901
  13. LOPRESSOR [Concomitant]
     Dosage: 50 MG,

REACTIONS (21)
  - PLEURAL EFFUSION [None]
  - BLOOD PRESSURE SYSTOLIC INCREASED [None]
  - VOMITING [None]
  - NAUSEA [None]
  - HAEMATOCRIT DECREASED [None]
  - LYMPHADENOPATHY [None]
  - HYDRONEPHROSIS [None]
  - LUNG DISORDER [None]
  - VARICES OESOPHAGEAL [None]
  - MALAISE [None]
  - BLOOD CREATININE INCREASED [None]
  - FATIGUE [None]
  - PLATELET COUNT DECREASED [None]
  - RETROPERITONEAL MASS [None]
  - ASCITES [None]
  - METASTATIC NEOPLASM [None]
  - ASTHENIA [None]
  - NEPHROLITHIASIS [None]
  - STOMACH MASS [None]
  - HAEMOGLOBIN DECREASED [None]
  - BLOOD BILIRUBIN INCREASED [None]
